FAERS Safety Report 19899347 (Version 1)
Quarter: 2021Q3

REPORT INFORMATION
  Report Type: Spontaneous
  Country: RU (occurrence: RU)
  Receive Date: 20210929
  Receipt Date: 20210929
  Transmission Date: 20211014
  Serious: Yes (Death, Hospitalization, Other)
  Sender: FDA-Public Use
  Company Number: RU-ABBVIE-21K-251-4096137-00

PATIENT
  Age: 12 Year
  Sex: Female

DRUGS (1)
  1. VALPROIC ACID. [Suspect]
     Active Substance: VALPROIC ACID
     Indication: EPILEPSY
     Route: 048
     Dates: start: 2014, end: 201711

REACTIONS (4)
  - Loss of consciousness [Unknown]
  - Epilepsy [Fatal]
  - Drowning [Fatal]
  - Soft tissue injury [Unknown]

NARRATIVE: CASE EVENT DATE: 20140619
